FAERS Safety Report 21206094 (Version 1)
Quarter: 2022Q3

REPORT INFORMATION
  Report Type: Report from Study
  Country: DE (occurrence: DE)
  Receive Date: 20220812
  Receipt Date: 20220812
  Transmission Date: 20221026
  Serious: Yes (Other)
  Sender: FDA-Public Use
  Company Number: DE-BRISTOL-MYERS SQUIBB COMPANY-2022-088320

PATIENT
  Age: 62 Year
  Sex: Male
  Weight: 99 kg

DRUGS (1)
  1. REVLIMID [Suspect]
     Active Substance: LENALIDOMIDE
     Indication: Plasma cell myeloma
     Route: 065
     Dates: start: 20200511, end: 20220522

REACTIONS (2)
  - Diarrhoea [Recovering/Resolving]
  - Polyneuropathy in malignant disease [Not Recovered/Not Resolved]

NARRATIVE: CASE EVENT DATE: 20220523
